FAERS Safety Report 4851597-9 (Version None)
Quarter: 2005Q4

REPORT INFORMATION
  Report Type: 
  Country: None (occurrence: None)
  Receive Date: 20051212
  Receipt Date: 20051201
  Transmission Date: 20060501
  Serious: Yes (Other)
  Sender: FDA-Public Use
  Company Number: PHRM2005FR03154

PATIENT
  Sex: Male

DRUGS (9)
  1. VINCRISTINE + ADRIAMYCIN + DEXAMETHASONE [Concomitant]
     Indication: MULTIPLE MYELOMA
     Dates: start: 20030401, end: 20030901
  2. THALIDOMIDE [Concomitant]
     Indication: MULTIPLE MYELOMA
     Dates: start: 20031001, end: 20040201
  3. THALIDOMIDE [Concomitant]
     Dates: start: 20040801
  4. DEXAMETHASONE [Concomitant]
     Indication: MULTIPLE MYELOMA
     Dates: start: 20031001, end: 20040201
  5. DEXAMETHASONE [Concomitant]
     Dates: start: 20051001
  6. ALKERAN [Concomitant]
     Indication: MULTIPLE MYELOMA
  7. VELCADE [Concomitant]
     Dates: start: 20051001
  8. ZOMETA [Suspect]
     Indication: MULTIPLE MYELOMA
     Dosage: UNK, UNK
     Route: 042
     Dates: start: 20031001, end: 20040201
  9. ZOMETA [Suspect]
     Route: 042
     Dates: start: 20040801

REACTIONS (3)
  - BONE DISORDER [None]
  - OSTEONECROSIS [None]
  - TOOTH EXTRACTION [None]
